FAERS Safety Report 11477189 (Version 1)
Quarter: 2015Q3

REPORT INFORMATION
  Report Type: Spontaneous
  Country: CA (occurrence: CA)
  Receive Date: 20150909
  Receipt Date: 20150909
  Transmission Date: 20151125
  Serious: Yes (Other)
  Sender: FDA-Public Use
  Company Number: CA-TEVA-591865ACC

PATIENT
  Age: 15 Year
  Sex: Female
  Weight: 99 kg

DRUGS (42)
  1. ALLOPURINOL. [Concomitant]
     Active Substance: ALLOPURINOL
  2. FISH OIL [Concomitant]
     Active Substance: FISH OIL
  3. NIFEDIPINE. [Concomitant]
     Active Substance: NIFEDIPINE
  4. PENTAMIDINE ISETHIONATE INJ 300MG/VIAL BP [Concomitant]
  5. PROGESTERONE. [Concomitant]
     Active Substance: PROGESTERONE
  6. TOBRAMYCIN INJECTION USP [Concomitant]
  7. ACETAMINOPHEN. [Concomitant]
     Active Substance: ACETAMINOPHEN
  8. CLOXACILLIN [Concomitant]
     Active Substance: CLOXACILLIN
  9. DIMENHYDRINATE. [Concomitant]
     Active Substance: DIMENHYDRINATE
  10. FENOFIBRATE. [Concomitant]
     Active Substance: FENOFIBRATE
  11. FERROUS SULFATE [Concomitant]
     Active Substance: FERROUS SULFATE\FERROUS SULFATE, DRIED
  12. L-ASPARAGINASE [Concomitant]
     Active Substance: ASPARAGINASE
     Route: 030
  13. METOCLOPRAMIDE. [Concomitant]
     Active Substance: METOCLOPRAMIDE
  14. VINCRISTINE SULFATE INJECTION USP [Suspect]
     Active Substance: VINCRISTINE SULFATE
     Route: 042
  15. ACYCLOVIR. [Concomitant]
     Active Substance: ACYCLOVIR
  16. ASPARAGINASE (E.COLI) [Concomitant]
  17. HYDROCORTISONE. [Concomitant]
     Active Substance: HYDROCORTISONE
  18. MORPHINE [Concomitant]
     Active Substance: MORPHINE
  19. NOVORAPID [Concomitant]
     Active Substance: INSULIN ASPART
  20. TRIMETHOPRIM-SULFAMETHOXAZOLE [Concomitant]
     Active Substance: SULFAMETHOXAZOLE\TRIMETHOPRIM
  21. DOXORUBICIN HYDROCHLORIDE INJECTION [Concomitant]
     Active Substance: DOXORUBICIN HYDROCHLORIDE
  22. GRANISETRON [Concomitant]
     Active Substance: GRANISETRON
  23. METHOTREXATE [Concomitant]
     Active Substance: METHOTREXATE
  24. METHYLPREDNISOLONE NOS [Concomitant]
     Active Substance: METHYLPREDNISOLONE OR METHYLPREDNISOLONE ACETATE
  25. ONDANSETRON [Concomitant]
     Active Substance: ONDANSETRON
  26. ZINECARD [Concomitant]
     Active Substance: DEXRAZOXANE HYDROCHLORIDE
     Route: 042
  27. VINCRISTINE SULFATE INJECTION USP [Suspect]
     Active Substance: VINCRISTINE SULFATE
     Indication: ACUTE LYMPHOCYTIC LEUKAEMIA
     Route: 042
  28. CODEINE [Concomitant]
     Active Substance: CODEINE
  29. CYTARABINE INJECTION [Concomitant]
     Active Substance: CYTARABINE
  30. DOCUSATE [Concomitant]
     Active Substance: DOCUSATE
  31. MEDROXYPROGESTERONE ACETATE. [Concomitant]
     Active Substance: MEDROXYPROGESTERONE ACETATE
  32. RANITIDINE [Concomitant]
     Active Substance: RANITIDINE\RANITIDINE HYDROCHLORIDE
  33. TRANEXAMIC ACID. [Concomitant]
     Active Substance: TRANEXAMIC ACID
  34. NYSTATIN. [Concomitant]
     Active Substance: NYSTATIN
  35. PREDNISONE. [Concomitant]
     Active Substance: PREDNISONE
  36. DEXAMETHASONE. [Concomitant]
     Active Substance: DEXAMETHASONE
  37. ETHINYL ESTRADIOL/LEVONORGE STREL [Concomitant]
  38. LEUCOVORIN. [Concomitant]
     Active Substance: LEUCOVORIN
  39. MERCAPTOPURINE. [Concomitant]
     Active Substance: MERCAPTOPURINE
  40. TIMENTIN [Concomitant]
     Active Substance: CLAVULANATE POTASSIUM\TICARCILLIN DISODIUM
     Route: 042
  41. URSODEOXYCHOLIC ACID [Concomitant]
     Active Substance: URSODIOL
  42. VANCOMYCIN [Concomitant]
     Active Substance: VANCOMYCIN

REACTIONS (4)
  - Urinary incontinence [Recovered/Resolved]
  - Neuropathy peripheral [Recovered/Resolved]
  - Vocal cord paralysis [Recovered/Resolved]
  - Faecal incontinence [Recovered/Resolved]
